FAERS Safety Report 19361764 (Version 1)
Quarter: 2021Q2

REPORT INFORMATION
  Report Type: Spontaneous
  Country: US (occurrence: US)
  Receive Date: 20210602
  Receipt Date: 20210602
  Transmission Date: 20210717
  Serious: No
  Sender: FDA-Public Use
  Company Number: US-TEVA-2021-US-1913828

PATIENT
  Age: 57 Year
  Sex: Male
  Weight: 97.52 kg

DRUGS (6)
  1. CLONAZEPAM. [Concomitant]
     Active Substance: CLONAZEPAM
  2. AZILECT [Concomitant]
     Active Substance: RASAGILINE MESYLATE
  3. BOTOX [Concomitant]
     Active Substance: ONABOTULINUMTOXINA
  4. AJOVY [Suspect]
     Active Substance: FREMANEZUMAB-VFRM
  5. AJOVY [Suspect]
     Active Substance: FREMANEZUMAB-VFRM
     Indication: MIGRAINE
     Route: 065
     Dates: start: 2020
  6. CYCLOBENZAPRINE. [Concomitant]
     Active Substance: CYCLOBENZAPRINE

REACTIONS (1)
  - Constipation [Unknown]
